FAERS Safety Report 4745769-1 (Version None)
Quarter: 2005Q3

REPORT INFORMATION
  Report Type: 
  Country: None (occurrence: None)
  Receive Date: 20050816
  Receipt Date: 20050805
  Transmission Date: 20060218
  Serious: Yes (Hospitalization)
  Sender: FDA-Public Use
  Company Number: DE-ABBOTT-05P-062-0307633-00

PATIENT
  Age: 7 Year

DRUGS (1)
  1. ERGENYL [Suspect]
     Indication: EPILEPSY
     Route: 048
     Dates: end: 20050722

REACTIONS (5)
  - CONDITION AGGRAVATED [None]
  - FANCONI SYNDROME ACQUIRED [None]
  - GAMMA-GLUTAMYLTRANSFERASE INCREASED [None]
  - LIPASE INCREASED [None]
  - THROMBOCYTOPENIA [None]
